FAERS Safety Report 12388526 (Version 3)
Quarter: 2017Q4

REPORT INFORMATION
  Report Type: Spontaneous
  Country: JP (occurrence: JP)
  Receive Date: 20160520
  Receipt Date: 20171026
  Transmission Date: 20180320
  Serious: Yes (Other)
  Sender: FDA-Public Use
  Company Number: JP-SUN PHARMACEUTICAL INDUSTRIES LTD-2016R1-116761

PATIENT
  Age: 85 Year
  Sex: Female
  Weight: 46 kg

DRUGS (2)
  1. DEXMEDETOMIDINE. [Suspect]
     Active Substance: DEXMEDETOMIDINE
     Indication: SEDATIVE THERAPY
     Dosage: (MAINTENANCE DOSE 0.1-0.05 UG/KG/H)
     Route: 042
  2. DEXMEDETOMIDINE. [Suspect]
     Active Substance: DEXMEDETOMIDINE
     Indication: TOOTH EXTRACTION
     Dosage: (LOADING DOSE FOR 10 MINUTES 1.7 UG/KG/H)
     Route: 042

REACTIONS (1)
  - Obstructive airways disorder [Recovered/Resolved]
